FAERS Safety Report 4459730-8 (Version None)
Quarter: 2004Q3

REPORT INFORMATION
  Report Type: 
  Country: None (occurrence: None)
  Receive Date: 20040928
  Receipt Date: 20040902
  Transmission Date: 20050211
  Serious: Yes (Other)
  Sender: FDA-Public Use
  Company Number: PHBS2004JP11808

PATIENT
  Sex: Male

DRUGS (3)
  1. LAMISIL [Suspect]
     Indication: NAIL TINEA
     Dosage: 125 MG/DAY
     Route: 048
     Dates: start: 20040701, end: 20040101
  2. ADALAT [Suspect]
     Indication: HYPERTENSION
     Dosage: 40 MG/DAY
     Route: 048
  3. BLOPRESS [Concomitant]
     Indication: HYPERTENSION
     Dosage: 8 MG/DAY
     Route: 048

REACTIONS (3)
  - BLOOD PRESSURE SYSTOLIC INCREASED [None]
  - DRUG INTERACTION [None]
  - HYPERTENSION [None]
